FAERS Safety Report 20441496 (Version 1)
Quarter: 2022Q1

REPORT INFORMATION
  Report Type: Report from Study
  Country: JP (occurrence: JP)
  Receive Date: 20220208
  Receipt Date: 20220208
  Transmission Date: 20220423
  Serious: Yes (Other)
  Sender: FDA-Public Use
  Company Number: JP-SAKK-2022SA036323AA

PATIENT
  Age: 81 Year

DRUGS (1)
  1. ALEMTUZUMAB [Suspect]
     Active Substance: ALEMTUZUMAB
     Indication: Chronic lymphocytic leukaemia
     Dosage: UNK
     Route: 041
     Dates: start: 20210421

REACTIONS (5)
  - Neutropenia [Unknown]
  - Neutropenia [Unknown]
  - Febrile neutropenia [Unknown]
  - Cytomegalovirus infection [Unknown]
  - Herpes simplex [Unknown]

NARRATIVE: CASE EVENT DATE: 20210101
